FAERS Safety Report 18448960 (Version 1)
Quarter: 2020Q4

REPORT INFORMATION
  Report Type: Spontaneous
  Country: US (occurrence: US)
  Receive Date: 20201031
  Receipt Date: 20201031
  Transmission Date: 20210114
  Serious: Yes (Other)
  Sender: FDA-Public Use
  Company Number: US-NAPPMUNDI-USA-2020-0152008

PATIENT
  Sex: Male

DRUGS (3)
  1. CODEINE [Suspect]
     Active Substance: CODEINE
     Indication: PRODUCT USED FOR UNKNOWN INDICATION
     Route: 065
  2. OXYCONTIN [Suspect]
     Active Substance: OXYCODONE HYDROCHLORIDE
     Indication: MULTIPLE INJURIES
     Dosage: 30 MG, TID
     Route: 048
     Dates: start: 200009, end: 201106
  3. HYDROCODONE [Suspect]
     Active Substance: HYDROCODONE
     Indication: MULTIPLE INJURIES
     Dosage: UNK
     Route: 065
     Dates: start: 200009, end: 201106

REACTIONS (2)
  - Drug dependence [Recovered/Resolved]
  - Off label use [Recovered/Resolved]
